FAERS Safety Report 15733937 (Version 1)
Quarter: 2018Q4

REPORT INFORMATION
  Report Type: Spontaneous
  Country: US (occurrence: US)
  Receive Date: 20181218
  Receipt Date: 20181218
  Transmission Date: 20190205
  Serious: No
  Sender: FDA-Public Use
  Company Number: US-PFIZER INC-2018497450

PATIENT
  Age: 55 Year
  Sex: Male
  Weight: 99.73 kg

DRUGS (6)
  1. CHANTIX [Suspect]
     Active Substance: VARENICLINE TARTRATE
     Indication: EX-TOBACCO USER
     Dosage: 0.5 MG, UNK (0.5MG TABLET BY MOUTH FOR FIRST 7 DAYS THEN SECOND WEEK 1MG TABLET TWICE A DAY)
     Route: 048
     Dates: start: 201811, end: 20181206
  2. CHANTIX [Suspect]
     Active Substance: VARENICLINE TARTRATE
     Indication: SMOKING CESSATION THERAPY
     Dosage: 1 MG, TWICE A DAY (0.5MG TABLET BY MOUTH FOR FIRST 7 DAYS THEN SECOND WEEK 1MG TABLET TWICE A DAY)
     Route: 048
     Dates: start: 201811, end: 20181206
  3. LANTUS [Concomitant]
     Active Substance: INSULIN GLARGINE
     Indication: DIABETES MELLITUS
     Dosage: 40 IU, DAILY
  4. GLIMEPIRIDE. [Concomitant]
     Active Substance: GLIMEPIRIDE
     Dosage: UNK
  5. TRULICITY [Concomitant]
     Active Substance: DULAGLUTIDE
     Indication: DIABETES MELLITUS
     Dosage: UNK
  6. METFORMIN [Concomitant]
     Active Substance: METFORMIN HYDROCHLORIDE
     Indication: DIABETES MELLITUS
     Dosage: 1000 MG, DAILY

REACTIONS (6)
  - Condition aggravated [Unknown]
  - Sensory disturbance [Unknown]
  - Mental disorder [Recovered/Resolved]
  - Emotional disorder [Recovered/Resolved]
  - Tremor [Recovered/Resolved]
  - Head discomfort [Unknown]

NARRATIVE: CASE EVENT DATE: 201811
